FAERS Safety Report 4490175-0 (Version None)
Quarter: 2004Q4

REPORT INFORMATION
  Report Type: 
  Country: None (occurrence: None)
  Receive Date: 20041027
  Receipt Date: 20041011
  Transmission Date: 20050328
  Serious: Yes (Other)
  Sender: FDA-Public Use
  Company Number: 2004076197

PATIENT
  Age: 60 Year
  Sex: Male

DRUGS (2)
  1. LIPITOR [Suspect]
     Indication: ILL-DEFINED DISORDER
  2. NEURONTIN [Suspect]
     Indication: HEADACHE
     Dosage: 300 MG (100 MG, 3 IN 1 D)
     Dates: start: 20040428, end: 20040701

REACTIONS (27)
  - ABDOMINAL PAIN [None]
  - ABNORMAL DREAMS [None]
  - ALCOHOLISM [None]
  - AMNESIA [None]
  - ANXIETY [None]
  - ARTHRITIS [None]
  - BACK PAIN [None]
  - CHEST DISCOMFORT [None]
  - DEPRESSION [None]
  - DIZZINESS [None]
  - DRUG INEFFECTIVE [None]
  - ELECTROMYOGRAM ABNORMAL [None]
  - FATIGUE [None]
  - HEADACHE [None]
  - IMPAIRED DRIVING ABILITY [None]
  - IMPAIRED WORK ABILITY [None]
  - MIGRAINE [None]
  - MUSCLE DISORDER [None]
  - MUSCULAR WEAKNESS [None]
  - MUSCULOSKELETAL STIFFNESS [None]
  - NECK PAIN [None]
  - NERVE CONDUCTION STUDIES ABNORMAL [None]
  - PHOTOSENSITIVITY REACTION [None]
  - SLEEP DISORDER [None]
  - SPINAL OSTEOARTHRITIS [None]
  - TINNITUS [None]
  - TRANSIENT ISCHAEMIC ATTACK [None]
